FAERS Safety Report 5755852-X (Version None)
Quarter: 2008Q2

REPORT INFORMATION
  Report Type: 
  Country: None (occurrence: None)
  Receive Date: 20080528
  Receipt Date: 20080516
  Transmission Date: 20081010
  Serious: Yes (Life-Threatening, Hospitalization, Other)
  Sender: FDA-Public Use
  Company Number: PAR_02213_2008

PATIENT
  Age: 18 Year
  Sex: Male

DRUGS (1)
  1. IBUPROFEN [Suspect]
     Indication: TOOTHACHE
     Dosage: 200 MG 2X ORAL
     Route: 048

REACTIONS (7)
  - FOREIGN BODY TRAUMA [None]
  - LEUKOCYTOSIS [None]
  - NECK PAIN [None]
  - ODYNOPHAGIA [None]
  - OESOPHAGEAL INJURY [None]
  - OESOPHAGEAL PERFORATION [None]
  - SUBCUTANEOUS EMPHYSEMA [None]
